FAERS Safety Report 5578057-4 (Version None)
Quarter: 2007Q4

REPORT INFORMATION
  Report Type: 
  Country: None (occurrence: None)
  Receive Date: 20071231
  Receipt Date: 20071221
  Transmission Date: 20080405
  Serious: Yes (Other)
  Sender: FDA-Public Use
  Company Number: GB-ROCHE-532040

PATIENT
  Age: 39 Year
  Sex: Female
  Weight: 114.3 kg

DRUGS (5)
  1. ORLISTAT [Suspect]
     Indication: OBESITY
     Route: 048
     Dates: start: 20070726
  2. GABAPENTIN [Concomitant]
     Route: 048
  3. OXYBUTYNIN CHLORIDE [Concomitant]
     Route: 048
  4. NAPROSYN [Concomitant]
     Route: 048
  5. ESCITALOPRAM [Concomitant]
     Indication: DEPRESSION
     Route: 048

REACTIONS (1)
  - ENDOMETRIOSIS [None]
